FAERS Safety Report 21637913 (Version 1)
Quarter: 2022Q4

REPORT INFORMATION
  Report Type: Spontaneous
  Country: DE (occurrence: DE)
  Receive Date: 20221124
  Receipt Date: 20221124
  Transmission Date: 20230113
  Serious: Yes (Hospitalization)
  Sender: FDA-Public Use
  Company Number: None

PATIENT
  Age: 50 Year
  Sex: Female

DRUGS (6)
  1. PACLITAXEL [Interacting]
     Active Substance: PACLITAXEL
     Indication: Product used for unknown indication
     Dosage: LAST ADMINISTRATION ON THE FIFTH OF OCTOBER
  2. TRASTUZUMAB [Interacting]
     Active Substance: TRASTUZUMAB
     Indication: Product used for unknown indication
     Dosage: LAST ADMINISTRATION ON THE FIFTH OF OCTOBER
  3. PERTUZUMAB [Suspect]
     Active Substance: PERTUZUMAB
     Indication: Product used for unknown indication
     Dosage: LAST ADMINISTRATION ON THE FIFTH OF OCTOBER
  4. TAMOXIFEN [Suspect]
     Active Substance: TAMOXIFEN
     Indication: Product used for unknown indication
     Dosage: 20 MG, 0-0-1-0
  5. LEVOTHYROXINE SODIUM [Concomitant]
     Active Substance: LEVOTHYROXINE SODIUM
     Dosage: 125 MCG, 1-0-0-0
  6. METOPROLOL [Concomitant]
     Active Substance: METOPROLOL
     Dosage: 23.75 MG, AS REQUIRED HALF A TABLET FOR PRE-EXISTING SINUS TACHYCARDIA

REACTIONS (10)
  - Product monitoring error [Unknown]
  - Chest discomfort [Unknown]
  - Hypertension [Unknown]
  - Dyspnoea exertional [Unknown]
  - Labelled drug-drug interaction medication error [Unknown]
  - Dyspnoea [Unknown]
  - Pericardial effusion [Unknown]
  - Angina pectoris [Unknown]
  - Tachycardia [Unknown]
  - Drug interaction [Unknown]
